FAERS Safety Report 7700996-6 (Version None)
Quarter: 2011Q3

REPORT INFORMATION
  Report Type: 
  Country: None (occurrence: None)
  Receive Date: 20110822
  Receipt Date: 20110808
  Transmission Date: 20111222
  Serious: Yes (Hospitalization, Other)
  Sender: FDA-Public Use
  Company Number: US-CELGENEUS-163-20785-11043645

PATIENT
  Sex: Male
  Weight: 102.15 kg

DRUGS (7)
  1. SENAKOT S [Concomitant]
     Route: 065
  2. THALOMID [Suspect]
     Indication: MULTIPLE MYELOMA
     Dosage: 200 MILLIGRAM
     Route: 048
     Dates: start: 20090101
  3. WARFARIN SODIUM [Concomitant]
     Indication: THROMBOSIS PROPHYLAXIS
     Dosage: 7.5 MILLIGRAM
     Route: 065
     Dates: start: 20100301
  4. KEPPRA XR [Concomitant]
     Dosage: 1000 MILLIGRAM
     Route: 065
     Dates: start: 20091201
  5. LACTULOSE [Concomitant]
     Dosage: 60 MILLILITER
     Route: 065
  6. WARFARIN SODIUM [Concomitant]
     Dosage: 10 MILLIGRAM
     Route: 065
     Dates: start: 20100301
  7. DEXAMETHASONE [Concomitant]
     Dosage: 40 MILLIGRAM
     Route: 065
     Dates: start: 20090101

REACTIONS (2)
  - DEEP VEIN THROMBOSIS [None]
  - CATARACT [None]
